FAERS Safety Report 9324042 (Version 1)
Quarter: 2013Q2

REPORT INFORMATION
  Report Type: Spontaneous
  Country: JP (occurrence: JP)
  Receive Date: 20130603
  Receipt Date: 20130603
  Transmission Date: 20140414
  Serious: Yes (Hospitalization, Other)
  Sender: FDA-Public Use
  Company Number: JP-PFIZER INC-2012297236

PATIENT
  Age: 47 Year
  Sex: Female
  Weight: 58 kg

DRUGS (17)
  1. CAMPTO [Suspect]
     Indication: COLON CANCER
     Dosage: 230 MG, 1X/DAY
     Route: 041
     Dates: start: 20110721, end: 20110721
  2. CAMPTO [Suspect]
     Dosage: 110 MG, 1X/DAY
     Route: 041
     Dates: start: 20110817, end: 20110817
  3. CAMPTO [Suspect]
     Dosage: 110 MG, 1X/DAY
     Route: 041
     Dates: start: 20110914, end: 20110914
  4. CAMPTO [Suspect]
     Dosage: 150 MG, 1X/DAY
     Route: 041
     Dates: start: 20110928, end: 20110928
  5. FLUOROURACIL [Suspect]
     Indication: COLON CANCER
     Dosage: 625 MG, 1X/DAY
     Route: 040
     Dates: start: 20110721, end: 20110721
  6. FLUOROURACIL [Suspect]
     Dosage: 3750 MG, ALTERNATE DAY
     Route: 041
     Dates: start: 20110721, end: 20110721
  7. FLUOROURACIL [Suspect]
     Dosage: 500 MG, 1X/DAY
     Route: 040
     Dates: start: 20110817, end: 20110817
  8. FLUOROURACIL [Suspect]
     Dosage: 2750 MG, ALTERNATE DAY
     Route: 041
     Dates: start: 20110817, end: 20110817
  9. FLUOROURACIL [Suspect]
     Dosage: 500 MG, 1X/DAY
     Route: 040
     Dates: start: 20110914, end: 20110914
  10. FLUOROURACIL [Suspect]
     Dosage: 2750 MG, ALTERNATE DAY
     Route: 041
     Dates: start: 20110914, end: 20110914
  11. FLUOROURACIL [Suspect]
     Dosage: 500 MG, 1X/DAY
     Route: 040
     Dates: start: 20110928, end: 20110928
  12. FLUOROURACIL [Suspect]
     Dosage: 2750 MG, ALTERNATE DAY
     Route: 041
     Dates: start: 20110928, end: 20110928
  13. ISOVORIN [Concomitant]
     Indication: COLON CANCER
     Dosage: 300 MG, 1X/DAY
     Route: 040
     Dates: start: 20110721, end: 20110928
  14. DEXART [Concomitant]
     Dosage: UNK
     Dates: start: 20110721, end: 20110928
  15. GRANISETRON [Concomitant]
     Dosage: UNK
     Dates: start: 20110721, end: 20110928
  16. NEUTROGIN [Concomitant]
     Dosage: UNK
     Dates: start: 20110803, end: 20111013
  17. RASENAZOLIN [Concomitant]
     Dosage: UNK
     Dates: start: 20110803, end: 20110807

REACTIONS (4)
  - Leukopenia [Recovered/Resolved]
  - Neutropenia [Recovering/Resolving]
  - Pyrexia [Recovered/Resolved]
  - Thrombocytopenia [Recovering/Resolving]
